FAERS Safety Report 8155920-1 (Version None)
Quarter: 2012Q1

REPORT INFORMATION
  Report Type: 
  Country: None (occurrence: None)
  Receive Date: 20120222
  Receipt Date: 20120216
  Transmission Date: 20120608
  Serious: Yes (Other)
  Sender: FDA-Public Use
  Company Number: US-BAYER-2012-016259

PATIENT
  Age: 26 Year
  Sex: Male

DRUGS (3)
  1. ALEVE (CAPLET) [Suspect]
  2. CYMBALTA [Suspect]
  3. NEURONTIN [Suspect]

REACTIONS (3)
  - URTICARIA [None]
  - THROAT TIGHTNESS [None]
  - HYPERSENSITIVITY [None]
